FAERS Safety Report 21272601 (Version 1)
Quarter: 2022Q3

REPORT INFORMATION
  Report Type: Spontaneous
  Country: TR (occurrence: None)
  Receive Date: 20220830
  Receipt Date: 20220830
  Transmission Date: 20221027
  Serious: Yes (Other)
  Sender: FDA-Public Use
  Company Number: TR-Unichem Pharmaceuticals (USA) Inc-UCM202208-000805

PATIENT
  Age: 14 Month
  Sex: Male

DRUGS (1)
  1. DIVALPROEX SODIUM [Suspect]
     Active Substance: DIVALPROEX SODIUM
     Indication: Foetal exposure during pregnancy
     Dosage: UNKNOWN

REACTIONS (3)
  - Foetal anticonvulsant syndrome [Unknown]
  - Benign neoplasm of cornea [Recovering/Resolving]
  - Foetal exposure during pregnancy [Unknown]
